FAERS Safety Report 14705844 (Version 6)
Quarter: 2018Q4

REPORT INFORMATION
  Report Type: Report from Study
  Country: NL (occurrence: NL)
  Receive Date: 20180402
  Receipt Date: 20181108
  Transmission Date: 20190204
  Serious: Yes (Hospitalization)
  Sender: FDA-Public Use
  Company Number: NL-PFIZER INC-2018131269

PATIENT
  Age: 35 Year
  Sex: Female
  Weight: 77 kg

DRUGS (17)
  1. PARACETAMOL [Concomitant]
     Active Substance: ACETAMINOPHEN
     Indication: PROPHYLAXIS
     Dosage: 1000 MG, 1X/DAY
     Route: 048
     Dates: start: 20150316, end: 20150316
  2. FLUTICASONE. [Concomitant]
     Active Substance: FLUTICASONE
     Indication: PROPHYLAXIS
     Dosage: 1 DF, 1X/DAY (DOSAGE: MDDOSE UNIT: ?G)
     Route: 055
     Dates: start: 20150313
  3. YASMIN [Concomitant]
     Active Substance: DROSPIRENONE\ETHINYL ESTRADIOL
     Indication: PROPHYLAXIS
     Dosage: 20 UG, 1X/DAY
     Route: 048
     Dates: start: 20150313, end: 20150401
  4. MODAFINIL. [Concomitant]
     Active Substance: MODAFINIL
     Indication: DRUG THERAPY
     Dosage: 100 MG 1X/DAY
     Route: 048
     Dates: start: 20150413
  5. METHYLPREDNISOLONE. [Suspect]
     Active Substance: METHYLPREDNISOLONE
     Indication: BACK PAIN
     Dosage: UNK
  6. TAVEGYL [Concomitant]
     Active Substance: CLEMASTINE FUMARATE
     Indication: PROPHYLAXIS
     Dosage: 2 MG, 1X/DAY
     Route: 048
     Dates: start: 20150316, end: 20150318
  7. LEMTRADA [Suspect]
     Active Substance: ALEMTUZUMAB
     Dosage: 12 MG, 1X/DAY
     Route: 041
     Dates: start: 20160229, end: 20160302
  8. ACICLOVIR [Concomitant]
     Active Substance: ACYCLOVIR
     Dosage: 800 MG, 1X/DAY
     Route: 048
     Dates: start: 20150315, end: 20150421
  9. COLECALCIFEROL [Concomitant]
     Active Substance: CHOLECALCIFEROL
     Indication: PROPHYLAXIS
     Dosage: 800 IU, 1X/DAY
     Route: 048
     Dates: start: 20130619
  10. LEMTRADA [Suspect]
     Active Substance: ALEMTUZUMAB
     Indication: MULTIPLE SCLEROSIS RELAPSE
     Dosage: 12 MG, 1X/DAY
     Route: 041
     Dates: start: 20150316, end: 20150320
  11. METHYLPREDNISOLONE. [Concomitant]
     Active Substance: METHYLPREDNISOLONE
     Indication: PROPHYLAXIS
     Dosage: 1000 MG, 1X/DAY
     Route: 048
     Dates: start: 20150316, end: 20150318
  12. ACICLOVIR [Concomitant]
     Active Substance: ACYCLOVIR
     Indication: PROPHYLAXIS
     Dosage: 800 MG, 1X/DAY
     Route: 048
     Dates: start: 20150316, end: 20150412
  13. PARACETAMOL [Concomitant]
     Active Substance: ACETAMINOPHEN
     Indication: DRUG THERAPY
     Dosage: 1000 MG, 1X/DAY
     Route: 048
     Dates: start: 20150319
  14. MIRENA [Concomitant]
     Active Substance: LEVONORGESTREL
     Indication: PROPHYLAXIS
     Dosage: 20 UG, 1X/DAY
     Dates: start: 20150401
  15. IBUPROFEN. [Concomitant]
     Active Substance: IBUPROFEN
     Indication: DRUG THERAPY
     Dosage: 600 MG, 1X/DAY (UNITS: MGDOSE: UNKNOWN)
     Route: 048
     Dates: start: 20150316
  16. IBUPROFEN. [Concomitant]
     Active Substance: IBUPROFEN
     Dosage: 600 MG, 1X/DAY
     Route: 048
     Dates: start: 20150319
  17. RANITIDINE. [Concomitant]
     Active Substance: RANITIDINE
     Indication: PROPHYLAXIS
     Dosage: 300 MG, 1X/DAY
     Route: 048
     Dates: start: 20150316, end: 20150318

REACTIONS (24)
  - Condition aggravated [Recovered/Resolved]
  - Drug hypersensitivity [Recovered/Resolved]
  - Epistaxis [Recovered/Resolved]
  - Limb injury [Recovering/Resolving]
  - Fibrous histiocytoma [Recovered/Resolved with Sequelae]
  - Headache [Recovered/Resolved]
  - Blood folate decreased [Recovered/Resolved]
  - Memory impairment [Not Recovered/Not Resolved]
  - Back pain [Recovered/Resolved]
  - Skin discolouration [Recovered/Resolved]
  - Headache [Not Recovered/Not Resolved]
  - Fatigue [Recovered/Resolved]
  - Multiple sclerosis [Recovered/Resolved]
  - Breast enlargement [Recovered/Resolved]
  - Condition aggravated [Recovered/Resolved]
  - Periarthritis [Recovered/Resolved]
  - Oropharyngeal pain [Recovered/Resolved]
  - Tinnitus [Recovered/Resolved]
  - Multiple sclerosis relapse [Recovered/Resolved with Sequelae]
  - Productive cough [Recovered/Resolved]
  - Chills [Recovered/Resolved]
  - Eyelid oedema [Recovered/Resolved]
  - Multiple sclerosis [Recovered/Resolved]
  - Arthralgia [Not Recovered/Not Resolved]

NARRATIVE: CASE EVENT DATE: 20150317
